FAERS Safety Report 12924470 (Version 1)
Quarter: 2016Q4

REPORT INFORMATION
  Report Type: Spontaneous
  Country: IT (occurrence: IT)
  Receive Date: 20161109
  Receipt Date: 20161109
  Transmission Date: 20170207
  Serious: Yes (Death)
  Sender: FDA-Public Use
  Company Number: IT-SUN PHARMACEUTICAL INDUSTRIES LTD-2016RR-127086

PATIENT
  Age: 51 Year
  Sex: Male

DRUGS (4)
  1. 5-FLUOROURACILE [Suspect]
     Active Substance: FLUOROURACIL
     Indication: TONGUE NEOPLASM MALIGNANT STAGE UNSPECIFIED
     Route: 065
     Dates: start: 20160616, end: 20160616
  2. CARBOPLATIN. [Suspect]
     Active Substance: CARBOPLATIN
     Indication: TONGUE NEOPLASM MALIGNANT STAGE UNSPECIFIED
     Route: 065
     Dates: start: 20160616, end: 20160616
  3. LONQUEX [Suspect]
     Active Substance: LIPEGFILGRASTIM
     Indication: TONGUE NEOPLASM MALIGNANT STAGE UNSPECIFIED
     Route: 065
     Dates: start: 20160620, end: 20160620
  4. ERBITUX [Suspect]
     Active Substance: CETUXIMAB
     Indication: TONGUE NEOPLASM MALIGNANT STAGE UNSPECIFIED
     Route: 065
     Dates: start: 20160623, end: 20160623

REACTIONS (2)
  - Bone marrow failure [Fatal]
  - Cerebral haemorrhage [Fatal]

NARRATIVE: CASE EVENT DATE: 20160711
